FAERS Safety Report 17522719 (Version 1)
Quarter: 2020Q1

REPORT INFORMATION
  Report Type: Spontaneous
  Country: US (occurrence: US)
  Receive Date: 20200311
  Receipt Date: 20200311
  Transmission Date: 20200409
  Serious: No
  Sender: FDA-Public Use
  Company Number: US-009507513-2002USA000273

PATIENT

DRUGS (1)
  1. PROVENTIL [Suspect]
     Active Substance: ALBUTEROL
     Indication: ASTHMA
     Dosage: UNKNOWN

REACTIONS (4)
  - Wheezing [Unknown]
  - Drug ineffective [Unknown]
  - Cough [Unknown]
  - Dyspnoea [Unknown]
